FAERS Safety Report 5319416-4 (Version None)
Quarter: 2007Q2

REPORT INFORMATION
  Report Type: 
  Country: None (occurrence: None)
  Receive Date: 20070508
  Receipt Date: 20070426
  Transmission Date: 20071010
  Serious: Yes (Other)
  Sender: FDA-Public Use
  Company Number: US-PFIZER INC-2007025265

PATIENT
  Sex: Female

DRUGS (7)
  1. CHANTIX [Suspect]
     Indication: EX-SMOKER
     Route: 048
  2. CHANTIX [Suspect]
     Indication: NICOTINE DEPENDENCE
  3. ZOCOR [Concomitant]
  4. EFFEXOR XR [Concomitant]
  5. XANAX [Concomitant]
  6. LOPRESSOR [Concomitant]
  7. LAMICTAL [Concomitant]

REACTIONS (4)
  - ANXIETY [None]
  - DEPRESSION [None]
  - INSOMNIA [None]
  - PANIC REACTION [None]
